FAERS Safety Report 20411765 (Version 1)
Quarter: 2022Q1

REPORT INFORMATION
  Report Type: Spontaneous
  Country: BR (occurrence: BR)
  Receive Date: 20220201
  Receipt Date: 20220201
  Transmission Date: 20220423
  Serious: Yes (Other)
  Sender: FDA-Public Use
  Company Number: BR-GLAXOSMITHKLINE-BR2021AMR205984

PATIENT
  Age: 68 Year
  Sex: Female
  Weight: 41 kg

DRUGS (11)
  1. SERETIDE [Suspect]
     Active Substance: FLUTICASONE PROPIONATE\SALMETEROL XINAFOATE
     Indication: Bronchitis
     Dosage: UNK, BID, (50/250 MCG) BEING ON THE MORNING AND AT NIGHT
     Dates: start: 20210828, end: 20210928
  2. BUDESONIDE [Suspect]
     Active Substance: BUDESONIDE
     Indication: Product used for unknown indication
     Dosage: UNK
  3. BECLOMETHASONE DIPROPIONATE [Suspect]
     Active Substance: BECLOMETHASONE DIPROPIONATE
     Indication: Bronchitis
     Dosage: UNK UNK, BID, MORNING AND EVENING
  4. SENSODYNE [Suspect]
     Active Substance: POTASSIUM NITRATE\SODIUM FLUORIDE
     Indication: Hyperaesthesia teeth
     Dosage: UNK
  5. DOMPERIDONE [Concomitant]
     Active Substance: DOMPERIDONE
     Indication: Product used for unknown indication
     Dosage: 10 MG
  6. LOSARTAN POTASSIUM [Concomitant]
     Active Substance: LOSARTAN POTASSIUM
     Indication: Blood pressure measurement
     Dosage: 50 MG
  7. SIMVASTATIN [Concomitant]
     Active Substance: SIMVASTATIN
     Indication: Blood cholesterol increased
     Dosage: 10 MG
  8. CITAL (ESCITALOPRAM OXALATE) [Concomitant]
     Indication: Product used for unknown indication
     Dosage: 20 MG
  9. SIMBRINZA (BRIMONIDINE TARTRATE + BRINZOLAMIDE) [Concomitant]
     Indication: Product used for unknown indication
     Dosage: 10 MG
  10. BROMOPRIDE [Concomitant]
     Active Substance: BROMOPRIDE
     Indication: Product used for unknown indication
     Dosage: 10 MG
  11. NASONEX [Concomitant]
     Active Substance: MOMETASONE FUROATE
     Indication: Product used for unknown indication
     Dosage: 50 UG

REACTIONS (27)
  - Syncope [Unknown]
  - Cough [Not Recovered/Not Resolved]
  - Dysphonia [Recovered/Resolved]
  - Nasal congestion [Recovering/Resolving]
  - Haemoptysis [Recovered/Resolved]
  - Oropharyngeal pain [Recovered/Resolved]
  - Vertigo [Recovered/Resolved]
  - Rhinorrhoea [Recovered/Resolved]
  - Lacrimation increased [Recovered/Resolved]
  - Sleep disorder [Recovered/Resolved]
  - Upper respiratory tract congestion [Recovering/Resolving]
  - Toothache [Recovered/Resolved]
  - Headache [Unknown]
  - Dyspnoea [Recovered/Resolved]
  - Migraine [Unknown]
  - Loss of personal independence in daily activities [Unknown]
  - Throat irritation [Not Recovered/Not Resolved]
  - Endodontic procedure [Recovered/Resolved]
  - Constipation [Unknown]
  - Pancreatic cyst [Recovered/Resolved]
  - Intestinal polyp [Recovered/Resolved]
  - Sinusitis [Unknown]
  - Influenza [Unknown]
  - Rhinitis [Not Recovered/Not Resolved]
  - Fatigue [Recovered/Resolved]
  - Nasopharyngitis [Unknown]
  - Condition aggravated [Unknown]

NARRATIVE: CASE EVENT DATE: 20210901
